FAERS Safety Report 8573581 (Version 2)
Quarter: 2013Q2

REPORT INFORMATION
  Report Type: Spontaneous
  Country: JP (occurrence: JP)
  Receive Date: 20120522
  Receipt Date: 20130502
  Transmission Date: 20140414
  Serious: Yes (Hospitalization)
  Sender: FDA-Public Use
  Company Number: JP-ELI_LILLY_AND_COMPANY-JP201205004321

PATIENT
  Age: 75 Year
  Sex: Female

DRUGS (3)
  1. FORTEO [Suspect]
     Dosage: UNK UNK, QD
     Route: 058
     Dates: start: 201202, end: 201211
  2. FORTEO [Suspect]
     Dosage: UNK
     Route: 058
     Dates: start: 20130413
  3. MYSLEE [Concomitant]
     Dosage: UNK
     Route: 048

REACTIONS (4)
  - Fracture [Unknown]
  - Gingival pruritus [Unknown]
  - Gingival bleeding [Unknown]
  - Headache [Unknown]
